FAERS Safety Report 21353837 (Version 1)
Quarter: 2022Q3

REPORT INFORMATION
  Report Type: Spontaneous
  Country: CA (occurrence: CA)
  Receive Date: 20220920
  Receipt Date: 20220920
  Transmission Date: 20221026
  Serious: Yes (Other)
  Sender: FDA-Public Use
  Company Number: CA-TEVA-2022-CA-2073907

PATIENT
  Age: 42 Year
  Sex: Male

DRUGS (3)
  1. LEFLUNOMIDE [Suspect]
     Active Substance: LEFLUNOMIDE
     Indication: Product used for unknown indication
     Route: 048
  2. HYDROXYCHLOROQUINE [Concomitant]
     Active Substance: HYDROXYCHLOROQUINE
     Indication: Product used for unknown indication
     Route: 048
  3. METHOTREXATE [Concomitant]
     Active Substance: METHOTREXATE
     Indication: Product used for unknown indication
     Route: 048

REACTIONS (11)
  - Ankylosing spondylitis [Unknown]
  - Balance disorder [Unknown]
  - Discomfort [Unknown]
  - Dysstasia [Unknown]
  - Fatigue [Unknown]
  - Gait disturbance [Unknown]
  - General physical health deterioration [Unknown]
  - Hypokinesia [Unknown]
  - Joint swelling [Unknown]
  - Musculoskeletal stiffness [Unknown]
  - Pain [Unknown]
